FAERS Safety Report 7779519-1 (Version None)
Quarter: 2011Q3

REPORT INFORMATION
  Report Type: 
  Country: None (occurrence: None)
  Receive Date: 20110927
  Receipt Date: 20110920
  Transmission Date: 20111222
  Serious: Yes (Death)
  Sender: FDA-Public Use
  Company Number: JP-SHIRE-SPV1-2010-00434

PATIENT

DRUGS (18)
  1. LANSOPRAZOLE [Concomitant]
     Indication: HYPERCHLORHYDRIA
     Dosage: 15 MG, UNKNOWN
     Route: 048
  2. CARVEDILOL [Concomitant]
     Indication: PRODUCT USED FOR UNKNOWN INDICATION
     Dosage: 2.5 MG, UNKNOWN
     Route: 048
  3. ALLOPURINOL [Concomitant]
     Indication: HYPERURICAEMIA
     Dosage: 100 MG, UNKNOWN
     Route: 048
  4. OXAROL [Concomitant]
     Indication: HYPERPARATHYROIDISM SECONDARY
     Dosage: 2.5 ?G, UNKNOWN
     Route: 042
     Dates: start: 20100223, end: 20101214
  5. CINACALCET HYDROCHLORIDE [Concomitant]
     Dosage: 50 MG, UNKNOWN
     Route: 048
     Dates: start: 20100223, end: 20101214
  6. RENAGEL [Concomitant]
     Indication: HYPERPHOSPHATAEMIA
     Dosage: 4250 MG, UNKNOWN
     Route: 048
  7. CINACALCET HYDROCHLORIDE [Concomitant]
     Indication: HYPERPARATHYROIDISM SECONDARY
     Dosage: 25 MG, UNKNOWN
     Route: 048
     Dates: start: 20090516, end: 20100223
  8. ALOSENN                            /00476901/ [Concomitant]
     Indication: CONSTIPATION
     Dosage: 1 G, UNKNOWN
     Route: 048
  9. VASOLAN                            /00014302/ [Concomitant]
     Indication: ARRHYTHMIA
     Dosage: 120 MG, UNKNOWN
     Route: 048
  10. DIGOXIN [Concomitant]
     Indication: ARRHYTHMIA
     Dosage: 0.125 MG, UNK
     Route: 048
  11. RENAGEL [Concomitant]
     Dosage: 1500 MG, UNK
     Route: 048
     Dates: start: 20090516, end: 20091023
  12. RENAGEL [Concomitant]
     Dosage: 50 MG, UNK
     Route: 048
     Dates: start: 20100223
  13. PLESTAZOL [Concomitant]
     Indication: THROMBOSIS PROPHYLAXIS
     Dosage: 100 MG, UNKNOWN
     Route: 048
  14. LANTHANUM CARBONATE [Suspect]
     Indication: HYPERPHOSPHATAEMIA
     Dosage: 750 MG, UNKNOWN
     Route: 048
     Dates: start: 20090516, end: 20091024
  15. LANTHANUM CARBONATE [Suspect]
     Dosage: 1250 MG, UNKNOWN
     Route: 048
     Dates: start: 20091024, end: 20101214
  16. EPADEL [Concomitant]
     Indication: LIPIDS ABNORMAL
     Dosage: 900 MG, UNKNOWN
     Route: 048
  17. ASPIRIN [Concomitant]
     Indication: THROMBOSIS PROPHYLAXIS
     Dosage: 100 MG, UNKNOWN
     Route: 048
  18. TSUMURA-SHAKUYAKU-KANZO-TO [Concomitant]
     Indication: PRODUCT USED FOR UNKNOWN INDICATION
     Dosage: 5 G, UNKNOWN
     Route: 048

REACTIONS (1)
  - ACUTE MYOCARDIAL INFARCTION [None]
